FAERS Safety Report 7636796-5 (Version None)
Quarter: 2011Q3

REPORT INFORMATION
  Report Type: 
  Country: None (occurrence: None)
  Receive Date: 20110726
  Receipt Date: 20110506
  Transmission Date: 20111222
  Serious: No
  Sender: FDA-Public Use
  Company Number: US-MUTUAL PHARMACEUTICAL COMPANY, INC.-DXCY20110006

PATIENT
  Age: 62 Year
  Sex: Male
  Weight: 83.99 kg

DRUGS (8)
  1. OXYCONTIN [Concomitant]
     Indication: PAIN
     Route: 048
  2. SYNTHROID [Concomitant]
     Indication: HYPOTHYROIDISM
     Route: 048
  3. CYTOMEL [Concomitant]
     Indication: HYPOTHYROIDISM
     Route: 048
  4. DOXYCYCLINE HYCLATE [Suspect]
     Indication: MUSCULOSKELETAL PAIN
     Route: 048
  5. KLONOPIN [Concomitant]
     Indication: NEURALGIA
     Route: 048
  6. DOXYCYCLINE HYCLATE [Suspect]
     Indication: ARTHRALGIA
  7. BUTALBITAL [Concomitant]
     Indication: MIGRAINE
     Route: 048
  8. OXYCODONE/ASPIRIN [Concomitant]
     Indication: PAIN
     Route: 048

REACTIONS (2)
  - MYALGIA [None]
  - OFF LABEL USE [None]
